FAERS Safety Report 16258553 (Version 2)
Quarter: 2019Q2

REPORT INFORMATION
  Report Type: Report from Study
  Country: NL (occurrence: NL)
  Receive Date: 20190430
  Receipt Date: 20190523
  Transmission Date: 20190711
  Serious: Yes (Death, Other)
  Sender: FDA-Public Use
  Company Number: NL-JAZZ-2019-NL-005987

PATIENT
  Age: 50 Year
  Sex: Female

DRUGS (2)
  1. XYREM [Suspect]
     Active Substance: SODIUM OXYBATE
     Indication: CATAPLEXY
  2. XYREM [Suspect]
     Active Substance: SODIUM OXYBATE
     Indication: NARCOLEPSY
     Dosage: 500 MG/ML, QD
     Route: 048
     Dates: start: 20070328

REACTIONS (1)
  - Death [Fatal]

NARRATIVE: CASE EVENT DATE: 20070328
